FAERS Safety Report 6199421-9 (Version None)
Quarter: 2009Q2

REPORT INFORMATION
  Report Type: 
  Country: None (occurrence: None)
  Receive Date: 20090520
  Receipt Date: 20090520
  Transmission Date: 20091009
  Serious: Yes (Hospitalization)
  Sender: FDA-Public Use
  Company Number: None

PATIENT
  Age: 76 Year
  Sex: Female
  Weight: 65.6 kg

DRUGS (1)
  1. METHOTREXATE [Suspect]
     Indication: RHEUMATOID ARTHRITIS
     Dosage: 2.5 MG WEEKLY SQ
     Route: 058

REACTIONS (5)
  - BLOOD COUNT ABNORMAL [None]
  - GENERALISED OEDEMA [None]
  - NAUSEA [None]
  - PANCYTOPENIA [None]
  - VOMITING [None]
